FAERS Safety Report 5800356-9 (Version None)
Quarter: 2008Q3

REPORT INFORMATION
  Report Type: 
  Country: None (occurrence: None)
  Receive Date: 20080702
  Receipt Date: 20080702
  Transmission Date: 20090109
  Serious: Yes (Other)
  Sender: FDA-Public Use
  Company Number: None

PATIENT
  Sex: Male

DRUGS (7)
  1. REVLIMID [Suspect]
     Indication: MULTIPLE MYELOMA
     Dosage: PO
     Route: 048
  2. DEXAMETHASONE [Concomitant]
  3. ASPIRIN [Concomitant]
  4. METHADON HCL TAB [Concomitant]
  5. OXYCODONE HCL [Concomitant]
  6. FAMOTIINE [Concomitant]
  7. ALPRAZOLAM [Concomitant]

REACTIONS (1)
  - NEUTROPENIA [None]
